FAERS Safety Report 7190403-7 (Version None)
Quarter: 2010Q4

REPORT INFORMATION
  Report Type: 
  Country: None (occurrence: None)
  Receive Date: 20101210
  Receipt Date: 20101130
  Transmission Date: 20110411
  Serious: Yes (Congenital Anomaly)
  Sender: FDA-Public Use
  Company Number: 2010MA004953

PATIENT
  Age: 0 Day
  Sex: Female

DRUGS (5)
  1. PROPRANOLOL HCL [Suspect]
     Indication: DRUG EXPOSURE DURING PREGNANCY
     Dosage: TPL
     Route: 064
  2. CAMPRAL [Suspect]
     Dosage: TPL
     Route: 064
  3. THIAMINE (THIAMINE) [Suspect]
     Dates: start: 20100301
  4. VENLAFAXINE HYDROCHLORIDE [Suspect]
     Dosage: TPL
     Route: 064
  5. VIT B1, IN COMBINATION WITH VITAMIN B6 AND B12 (VIT B1, IN COMBINATION [Suspect]
     Dates: start: 20100301

REACTIONS (6)
  - CLEFT PALATE [None]
  - DYSMORPHISM [None]
  - FOETAL ALCOHOL SYNDROME [None]
  - LIMB REDUCTION DEFECT [None]
  - MATERNAL DRUGS AFFECTING FOETUS [None]
  - MICRODACTYLY [None]
